FAERS Safety Report 4295943-6 (Version None)
Quarter: 2004Q1

REPORT INFORMATION
  Report Type: 
  Country: None (occurrence: None)
  Receive Date: 20040212
  Receipt Date: 20040129
  Transmission Date: 20041129
  Serious: Yes (Other)
  Sender: FDA-Public Use
  Company Number: CA-JNJFOC-20040201870

PATIENT
  Age: 7 Year
  Sex: Male
  Weight: 39.0093 kg

DRUGS (1)
  1. CONCERTA [Suspect]
     Indication: DISTURBANCE IN ATTENTION
     Dosage: 72 MG, 1 IN 1 DAY, ORAL
     Route: 048

REACTIONS (6)
  - AMNESIA [None]
  - BIPOLAR DISORDER [None]
  - CHILDHOOD PSYCHOSIS [None]
  - DRUG EFFECT DECREASED [None]
  - MANIA [None]
  - OVERDOSE [None]
